FAERS Safety Report 5829397-2 (Version None)
Quarter: 2008Q2

REPORT INFORMATION
  Report Type: 
  Country: None (occurrence: None)
  Receive Date: 20080601
  Receipt Date: 20080219
  Transmission Date: 20081010
  Serious: No
  Sender: FDA-Public Use
  Company Number: US200802004655

PATIENT
  Age: 64 Year
  Sex: Female
  Weight: 83.9 kg

DRUGS (10)
  1. BYETTA [Suspect]
     Indication: TYPE 2 DIABETES MELLITUS
     Dosage: 5 UG, 2/D, SUBCUTANEOUS
     Route: 058
     Dates: start: 20070101
  2. ACTOS /USA/ (PIOGLITAZONE HYDROCHLORIDE) [Concomitant]
  3. GLUCOVANCE [Concomitant]
  4. LOPRESSOR [Concomitant]
  5. LOPID [Concomitant]
  6. ZOLOFT [Concomitant]
  7. ASPIRIN /USA/ (ACETYLSALICYLIC ACID) [Concomitant]
  8. ZOCOR [Concomitant]
  9. LASIX /USA/ (FUROSEMIDE) [Concomitant]
  10. POTASSIUM (POTASSIUM) [Concomitant]

REACTIONS (1)
  - WEIGHT INCREASED [None]
